FAERS Safety Report 24732127 (Version 1)
Quarter: 2024Q4

REPORT INFORMATION
  Report Type: Spontaneous
  Country: US (occurrence: US)
  Receive Date: 20241213
  Receipt Date: 20241213
  Transmission Date: 20250114
  Serious: Yes (Other)
  Sender: PROACTIV
  Company Number: US-The Proactiv LLC-2167011

PATIENT
  Age: 70 Year
  Sex: Female

DRUGS (6)
  1. PROACTIVPLUS SKIN SMOOTHING EXFOLIATOR [Suspect]
     Active Substance: BENZOYL PEROXIDE
  2. PROACTIV CLEAR SKIN SPF 30 [Suspect]
     Active Substance: AVOBENZONE\OCTISALATE\OCTOCRYLENE
  3. PROACTIV SKIN PURIFYING MASK [Suspect]
     Active Substance: SULFUR
  4. PROACTIV EMERGENCY BLEMISH RELIEF [Suspect]
     Active Substance: BENZOYL PEROXIDE
  5. PROACTIV PLUS COMPLEXION PERFECTING HYDRATOR [Suspect]
     Active Substance: SALICYLIC ACID
  6. PROACTIV PLUS PORE TARGETING TREATMENT [Suspect]
     Active Substance: BENZOYL PEROXIDE

REACTIONS (5)
  - Pancreatic carcinoma [Unknown]
  - Dry skin [Unknown]
  - Seborrhoea [Unknown]
  - Drug ineffective [Unknown]
  - Skin irritation [Unknown]
